FAERS Safety Report 4788023-4 (Version None)
Quarter: 2005Q3

REPORT INFORMATION
  Report Type: 
  Country: None (occurrence: None)
  Receive Date: 20050914
  Receipt Date: 20050809
  Transmission Date: 20060218
  Serious: Yes (Other)
  Sender: FDA-Public Use
  Company Number: 413874

PATIENT
  Age: 79 Year
  Sex: Female

DRUGS (5)
  1. BONIVA [Suspect]
     Indication: OSTEOPOROSIS
     Dosage: 150 MG 1 PER MONTH ORAL
     Route: 048
     Dates: start: 20050805, end: 20050805
  2. CAPTOPRIL [Concomitant]
  3. CARDIZEM [Concomitant]
  4. PRAVACHOL [Concomitant]
  5. HCTZ (HYDROCHLOROTHIAZIDE) [Concomitant]

REACTIONS (4)
  - ANOREXIA [None]
  - HYPERHIDROSIS [None]
  - LETHARGY [None]
  - SYNCOPE [None]
